FAERS Safety Report 16772067 (Version 1)
Quarter: 2019Q3

REPORT INFORMATION
  Report Type: Spontaneous
  Country: US (occurrence: US)
  Receive Date: 20190904
  Receipt Date: 20190904
  Transmission Date: 20191005
  Serious: Yes (Death)
  Sender: FDA-Public Use
  Company Number: US-HORIZON-DUE-0512-2019

PATIENT
  Age: 57 Year
  Sex: Female

DRUGS (1)
  1. DUEXIS [Suspect]
     Active Substance: FAMOTIDINE\IBUPROFEN
     Indication: FIBROMYALGIA
     Dosage: ONE TABLET BY MOUTH THREE TIMES A DAY
     Route: 048

REACTIONS (2)
  - Death [Fatal]
  - Off label use [Unknown]

NARRATIVE: CASE EVENT DATE: 20190808
